FAERS Safety Report 19785355 (Version 1)
Quarter: 2021Q3

REPORT INFORMATION
  Report Type: Spontaneous
  Country: DE (occurrence: DE)
  Receive Date: 20210903
  Receipt Date: 20210903
  Transmission Date: 20211014
  Serious: Yes (Other)
  Sender: FDA-Public Use
  Company Number: DE-PFIZER INC-202101090157

PATIENT
  Age: 28 Year
  Sex: Female
  Weight: 88 kg

DRUGS (1)
  1. CYTOTEC [Suspect]
     Active Substance: MISOPROSTOL
     Dosage: 1 DF, SINGLE
     Dates: start: 201908, end: 201908

REACTIONS (2)
  - Uterine tachysystole [Recovered/Resolved]
  - Maternal exposure during delivery [Unknown]

NARRATIVE: CASE EVENT DATE: 201908
